FAERS Safety Report 7487085-3 (Version None)
Quarter: 2011Q2

REPORT INFORMATION
  Report Type: 
  Country: None (occurrence: None)
  Receive Date: 20110518
  Receipt Date: 20110505
  Transmission Date: 20111010
  Serious: Yes (Other)
  Sender: FDA-Public Use
  Company Number: GB-RANBAXY-2011R1-43830

PATIENT
  Age: 63 Year
  Sex: Male

DRUGS (3)
  1. SIMVASTATIN [Suspect]
     Indication: TRANSIENT ISCHAEMIC ATTACK
  2. ASPIRIN AND DIPYRIDAMOLE [Concomitant]
     Indication: PRODUCT USED FOR UNKNOWN INDICATION
     Dosage: UNK
     Route: 065
  3. SIMVASTATIN [Suspect]
     Indication: PROPHYLAXIS
     Dosage: 40 MG, QD
     Route: 048

REACTIONS (1)
  - TENDON RUPTURE [None]
